FAERS Safety Report 26052627 (Version 2)
Quarter: 2025Q4

REPORT INFORMATION
  Report Type: Report from Study
  Country: EU (occurrence: EU)
  Receive Date: 20251117
  Receipt Date: 20251127
  Transmission Date: 20260118
  Serious: Yes (Hospitalization)
  Sender: JOHNSON AND JOHNSON
  Company Number: EU-JNJFOC-20251160371

PATIENT
  Age: 60 Year
  Sex: Female
  Weight: 88 kg

DRUGS (10)
  1. YONDELIS [Suspect]
     Active Substance: TRABECTEDIN
     Indication: Leiomyosarcoma
     Dates: start: 20251024, end: 20251024
  2. YONDELIS [Suspect]
     Active Substance: TRABECTEDIN
     Dates: end: 20251113
  3. YONDELIS [Suspect]
     Active Substance: TRABECTEDIN
  4. DOXORUBICIN [Suspect]
     Active Substance: DOXORUBICIN
     Indication: Product used for unknown indication
     Route: 042
     Dates: start: 20251024, end: 20251024
  5. DOXORUBICIN [Suspect]
     Active Substance: DOXORUBICIN
     Route: 042
     Dates: end: 20251113
  6. DEXAMETHASONE [Suspect]
     Active Substance: DEXAMETHASONE
     Indication: Product used for unknown indication
     Route: 042
     Dates: start: 20251024, end: 20251024
  7. METFORMIN HYDROCHLORIDE [Concomitant]
     Active Substance: METFORMIN HYDROCHLORIDE
     Indication: Product used for unknown indication
  8. PERINDOPRIL [Concomitant]
     Active Substance: PERINDOPRIL
     Indication: Product used for unknown indication
  9. AMLODIPINE [Concomitant]
     Active Substance: AMLODIPINE BESYLATE
     Indication: Product used for unknown indication
  10. RETINOL [Concomitant]
     Active Substance: RETINOL
     Indication: Product used for unknown indication

REACTIONS (1)
  - Nausea [Recovered/Resolved]

NARRATIVE: CASE EVENT DATE: 20251027
